FAERS Safety Report 23932030 (Version 1)
Quarter: 2024Q2

REPORT INFORMATION
  Report Type: Spontaneous
  Country: IN (occurrence: IN)
  Receive Date: 20240603
  Receipt Date: 20240603
  Transmission Date: 20240715
  Serious: Yes (Hospitalization)
  Sender: FDA-Public Use
  Company Number: IN-MLMSERVICE-20240516-PI065936-00306-1

PATIENT
  Age: 16 Year
  Sex: Male

DRUGS (2)
  1. TACROLIMUS [Suspect]
     Active Substance: TACROLIMUS
     Indication: Immunosuppressant drug therapy
  2. MYCOPHENOLATE SODIUM [Concomitant]
     Active Substance: MYCOPHENOLATE SODIUM
     Indication: Immunosuppressant drug therapy

REACTIONS (7)
  - Complications of transplanted kidney [Recovered/Resolved]
  - Klebsiella infection [Recovered/Resolved]
  - Thrombotic thrombocytopenic purpura [Recovered/Resolved]
  - Microangiopathic haemolytic anaemia [Recovered/Resolved]
  - Accelerated hypertension [Recovered/Resolved]
  - Thrombotic microangiopathy [Recovered/Resolved]
  - Renal tubular necrosis [Recovered/Resolved]
